FAERS Safety Report 6132202-0 (Version None)
Quarter: 2009Q1

REPORT INFORMATION
  Report Type: 
  Country: None (occurrence: None)
  Receive Date: 20090325
  Receipt Date: 20090316
  Transmission Date: 20090719
  Serious: Yes (Life-Threatening)
  Sender: FDA-Public Use
  Company Number: AT-ROCHE-621728

PATIENT
  Age: 55 Year
  Sex: Female

DRUGS (3)
  1. BONIVA [Suspect]
     Indication: OSTEOPOROSIS
     Route: 042
  2. BONIVA [Suspect]
     Dosage: THE THEPARY WAS DISCONTINUED.
     Route: 042
     Dates: end: 20090109
  3. MAXI-KALZ [Concomitant]
     Dosage: DRUG NAME: MAXIKALZ

REACTIONS (1)
  - ANAPHYLACTIC SHOCK [None]
